FAERS Safety Report 8029136-3 (Version None)
Quarter: 2012Q1

REPORT INFORMATION
  Report Type: 
  Country: None (occurrence: None)
  Receive Date: 20120106
  Receipt Date: 20111227
  Transmission Date: 20120608
  Serious: Yes (Hospitalization, Other)
  Sender: FDA-Public Use
  Company Number: PHEH2011US012538

PATIENT
  Sex: Female
  Weight: 109 kg

DRUGS (12)
  1. LOVAZA [Concomitant]
  2. VITAMIN B COMPLEX CAP [Concomitant]
  3. LOMOTIL [Concomitant]
  4. ERGOCALCIFEROL [Concomitant]
  5. ZYRTEC [Concomitant]
  6. MULTI-VITAMIN [Concomitant]
  7. GLEEVEC [Suspect]
     Dosage: 400 MG, QD
     Route: 048
     Dates: start: 20101012
  8. GASTROCROM [Concomitant]
  9. GLEEVEC [Suspect]
     Indication: MALIGNANT MAST CELL NEOPLASM
     Dosage: 100 MG, QD
     Route: 048
     Dates: start: 20090209
  10. ZANTAC [Concomitant]
  11. CALCIUM ACETATE [Concomitant]
  12. OMEGA-3 FATTY ACIDS [Concomitant]

REACTIONS (22)
  - SPLENOMEGALY [None]
  - ABDOMINAL PAIN [None]
  - OSTEOPOROSIS [None]
  - SINUS CONGESTION [None]
  - MALNUTRITION [None]
  - BLOOD POTASSIUM DECREASED [None]
  - GASTROINTESTINAL DISORDER [None]
  - WEIGHT DECREASED [None]
  - COUGH [None]
  - HYPOCALCAEMIA [None]
  - THROMBOCYTOPENIA [None]
  - DIZZINESS [None]
  - VOMITING [None]
  - DIARRHOEA [None]
  - DUODENAL ULCER PERFORATION [None]
  - BLOOD ALBUMIN DECREASED [None]
  - FOOD INTOLERANCE [None]
  - MALAISE [None]
  - DEHYDRATION [None]
  - IRRITABLE BOWEL SYNDROME [None]
  - PLATELET COUNT DECREASED [None]
  - NASOPHARYNGITIS [None]
